FAERS Safety Report 23083217 (Version 1)
Quarter: 2023Q4

REPORT INFORMATION
  Report Type: Spontaneous
  Country: AU (occurrence: AU)
  Receive Date: 20231019
  Receipt Date: 20231019
  Transmission Date: 20240109
  Serious: Yes (Other)
  Sender: FDA-Public Use
  Company Number: AU-BAXTER-2023BAX033369

PATIENT
  Sex: Male

DRUGS (16)
  1. DOXORUBICIN [Suspect]
     Active Substance: DOXORUBICIN
     Indication: Lymphoma
     Dosage: UNK, AS A PART OF R-CHOP REGIMEN, START DATE: 2021
     Route: 065
  2. CYCLOPHOSPHAMIDE [Suspect]
     Active Substance: CYCLOPHOSPHAMIDE
     Indication: Lymphoma
     Dosage: UNK, AS A PART OF R-CHOP REGIMEN, START DATE: 2021
     Route: 065
  3. RITUXIMAB [Suspect]
     Active Substance: RITUXIMAB
     Indication: Lymphoma
     Dosage: UNK, AS A PART OF R-CHOP REGIMEN, START DATE: 2021
     Route: 065
  4. RITUXIMAB [Suspect]
     Active Substance: RITUXIMAB
     Indication: Central nervous system lymphoma
     Dosage: UNK, AS A PART OF 3 X MATRIX REGIMEN, START DATE: 2023
     Route: 065
  5. RITUXIMAB [Suspect]
     Active Substance: RITUXIMAB
     Indication: Disease recurrence
  6. VINCRISTINE [Suspect]
     Active Substance: VINCRISTINE
     Indication: Lymphoma
     Dosage: UNK, AS A PART OF R-CHOP REGIMEN, START DATE: 2021
     Route: 065
  7. PREDNISOLONE [Suspect]
     Active Substance: PREDNISOLONE
     Indication: Lymphoma
     Dosage: UNK, AS A PART OF R-CHOP REGIMEN, START DATE: 2021
     Route: 065
  8. METHOTREXATE [Suspect]
     Active Substance: METHOTREXATE
     Indication: Lymphoma
     Dosage: UNK, AS A PART OF 3 X MATRIX REGIMEN, START DATE: 2023
     Route: 065
  9. METHOTREXATE [Suspect]
     Active Substance: METHOTREXATE
     Indication: Central nervous system lymphoma
  10. METHOTREXATE [Suspect]
     Active Substance: METHOTREXATE
     Indication: Disease recurrence
  11. CYTARABINE [Suspect]
     Active Substance: CYTARABINE
     Indication: Lymphoma
     Dosage: UNK, AS A PART OF 3 X MATRIX REGIMEN, START DATE: 2023
     Route: 065
  12. CYTARABINE [Suspect]
     Active Substance: CYTARABINE
     Indication: Central nervous system lymphoma
  13. CYTARABINE [Suspect]
     Active Substance: CYTARABINE
     Indication: Disease recurrence
  14. THIOTEPA [Suspect]
     Active Substance: THIOTEPA
     Indication: Lymphoma
     Dosage: UNK, AS A PART OF 3 X MATRIX REGIMEN, START DATE: 2023
     Route: 065
  15. THIOTEPA [Suspect]
     Active Substance: THIOTEPA
     Indication: Central nervous system lymphoma
  16. THIOTEPA [Suspect]
     Active Substance: THIOTEPA
     Indication: Disease recurrence

REACTIONS (5)
  - Refractory cancer [Unknown]
  - Central nervous system lymphoma [Unknown]
  - Lymphoma [Unknown]
  - Disease progression [Unknown]
  - Disease recurrence [Unknown]
